FAERS Safety Report 9421961 (Version 1)
Quarter: 2013Q3

REPORT INFORMATION
  Report Type: Report from Study
  Country: US (occurrence: US)
  Receive Date: 20130726
  Receipt Date: 20130726
  Transmission Date: 20140515
  Serious: Yes (Hospitalization)
  Sender: FDA-Public Use
  Company Number: US-JNJFOC-20130710531

PATIENT
  Age: 14 Year
  Sex: Male
  Weight: 43.5 kg

DRUGS (9)
  1. REMICADE [Suspect]
     Indication: CROHN^S DISEASE
     Route: 042
     Dates: start: 20130619
  2. REMICADE [Suspect]
     Indication: CROHN^S DISEASE
     Route: 042
     Dates: start: 20130508
  3. REMICADE [Suspect]
     Indication: CROHN^S DISEASE
     Route: 042
     Dates: start: 20130424
  4. 5-ASA [Concomitant]
     Route: 048
  5. ANTIBIOTICS FOR IBD [Concomitant]
     Route: 065
  6. MULTIVITAMINS [Concomitant]
     Route: 065
  7. CALTRATE 600 + D [Concomitant]
     Route: 048
  8. CLARITIN [Concomitant]
     Route: 065
  9. PRILOSEC [Concomitant]
     Route: 065

REACTIONS (1)
  - Pancreatitis acute [Recovered/Resolved]
